FAERS Safety Report 7240534-8 (Version None)
Quarter: 2011Q1

REPORT INFORMATION
  Report Type: 
  Country: None (occurrence: None)
  Receive Date: 20110124
  Receipt Date: 20110110
  Transmission Date: 20110831
  Serious: Yes (Hospitalization, Other)
  Sender: FDA-Public Use
  Company Number: US-ASTRAZENECA-2010SE49651

PATIENT
  Age: 49 Year
  Sex: Female
  Weight: 69.9 kg

DRUGS (21)
  1. CRESTOR [Concomitant]
     Route: 048
  2. VESICARE [Concomitant]
     Route: 048
  3. GLUCOPHAGE [Concomitant]
     Route: 048
  4. AVANDIA [Concomitant]
     Route: 048
  5. ESTRADIOL [Concomitant]
     Route: 048
  6. BENZONATATE [Concomitant]
     Route: 048
  7. METOCLOPRAMIDE [Concomitant]
     Route: 048
  8. ADVAIR DISKUS 100/50 [Concomitant]
     Dosage: 250-50MCG/DOSE
     Route: 055
  9. AMARYL [Concomitant]
  10. PREDNISONE [Concomitant]
  11. AVAPRO [Concomitant]
     Route: 048
  12. DIOVAN HCT [Concomitant]
     Dosage: 320MG/12.5MG
  13. COZAAR [Concomitant]
     Route: 048
  14. ENABLEX [Concomitant]
     Route: 048
  15. SINGULAIR [Concomitant]
     Route: 048
  16. GLYBURIDE [Concomitant]
     Route: 048
  17. WARFARIN [Concomitant]
     Route: 048
  18. PREMPRO [Concomitant]
  19. BACLOFEN [Concomitant]
     Route: 048
  20. NEXIUM [Suspect]
     Route: 048
  21. CYCLOBENZAPRINE [Concomitant]
     Route: 048

REACTIONS (57)
  - PANCREATITIS ACUTE [None]
  - DIABETIC KETOACIDOSIS [None]
  - CONVULSION [None]
  - CANDIDIASIS [None]
  - NAUSEA [None]
  - VOMITING [None]
  - PELVIC PAIN [None]
  - CHRONIC OBSTRUCTIVE PULMONARY DISEASE [None]
  - BRONCHIOLITIS [None]
  - DEHYDRATION [None]
  - ABDOMINAL PAIN UPPER [None]
  - LEUKOCYTOSIS [None]
  - NEURALGIA [None]
  - GASTROENTERITIS [None]
  - MENTAL STATUS CHANGES [None]
  - CYSTOCELE [None]
  - HYPERTENSION [None]
  - GLUCOSE-6-PHOSPHATE DEHYDROGENASE DEFICIENCY [None]
  - SIALOADENITIS [None]
  - PULMONARY FIBROSIS [None]
  - HYPERLIPIDAEMIA [None]
  - HYPOKALAEMIA [None]
  - TOXICITY TO VARIOUS AGENTS [None]
  - INTERSTITIAL LUNG DISEASE [None]
  - PANCREATIC INSUFFICIENCY [None]
  - HYPOALBUMINAEMIA [None]
  - DIVERTICULUM [None]
  - ANAEMIA [None]
  - DIARRHOEA [None]
  - TYPE 2 DIABETES MELLITUS [None]
  - INTERVERTEBRAL DISC DISORDER [None]
  - BURSITIS [None]
  - CEREBRAL INFARCTION [None]
  - UTERINE LEIOMYOMA [None]
  - CEREBROVASCULAR ACCIDENT [None]
  - BLOOD MAGNESIUM DECREASED [None]
  - STRESS URINARY INCONTINENCE [None]
  - PAIN [None]
  - PAROTITIS [None]
  - CONFUSIONAL STATE [None]
  - COUGH [None]
  - BACK PAIN [None]
  - ARTHROPATHY [None]
  - AMMONIA INCREASED [None]
  - ALCOHOL POISONING [None]
  - METABOLIC ACIDOSIS [None]
  - PNEUMONIA [None]
  - INTERVERTEBRAL DISC PROTRUSION [None]
  - RENAL FAILURE CHRONIC [None]
  - THYROID MASS [None]
  - ASTHMA [None]
  - GOITRE [None]
  - HYPERCHOLESTEROLAEMIA [None]
  - RHINITIS ALLERGIC [None]
  - NEUROPATHY PERIPHERAL [None]
  - URINARY INCONTINENCE [None]
  - SUBSTANCE ABUSE [None]
